FAERS Safety Report 12737091 (Version 3)
Quarter: 2016Q4

REPORT INFORMATION
  Report Type: Spontaneous
  Country: US (occurrence: US)
  Receive Date: 20160913
  Receipt Date: 20161006
  Transmission Date: 20170207
  Serious: No
  Sender: FDA-Public Use
  Company Number: US-HORIZON-ACT-0213-2016

PATIENT
  Age: 6 Year
  Sex: Male

DRUGS (2)
  1. ITRACONAZOLE. [Concomitant]
     Active Substance: ITRACONAZOLE
  2. ACTIMMUNE [Suspect]
     Active Substance: INTERFERON GAMMA-1B
     Dosage: 36 ?G SQ TIW
     Route: 058
     Dates: start: 20160107

REACTIONS (1)
  - Headache [Unknown]

NARRATIVE: CASE EVENT DATE: 201609
